FAERS Safety Report 10170853 (Version 1)
Quarter: 2014Q2

REPORT INFORMATION
  Report Type: Spontaneous
  Country: US (occurrence: None)
  Receive Date: 20140513
  Receipt Date: 20140513
  Transmission Date: 20141212
  Serious: Yes (Death, Hospitalization)
  Sender: FDA-Public Use
  Company Number: None

PATIENT
  Age: 80 Year
  Sex: Female
  Weight: 81.65 kg

DRUGS (1)
  1. ELIQUIS [Suspect]
     Indication: THROMBOSIS
     Route: 048
     Dates: start: 20131221, end: 201404

REACTIONS (3)
  - Intracranial pressure increased [None]
  - Haemorrhage [None]
  - Loss of consciousness [None]
